FAERS Safety Report 8828798 (Version 2)
Quarter: 2013Q1

REPORT INFORMATION
  Report Type: Spontaneous
  Country: BR (occurrence: BR)
  Receive Date: 20121008
  Receipt Date: 20130121
  Transmission Date: 20140127
  Serious: Yes (Other)
  Sender: FDA-Public Use
  Company Number: BR-ELI_LILLY_AND_COMPANY-BR201209008205

PATIENT
  Sex: Male
  Weight: 80 kg

DRUGS (2)
  1. CIALIS [Suspect]
     Indication: ERECTILE DYSFUNCTION
     Dosage: 20 MG, 2/M
     Route: 048
     Dates: start: 201109, end: 201209
  2. CIALIS [Suspect]
     Dosage: 5 MG, UNKNOWN
     Route: 065

REACTIONS (4)
  - Visual impairment [Recovered/Resolved]
  - Vision blurred [Recovered/Resolved]
  - Hepatic steatosis [Recovered/Resolved]
  - Flushing [Recovered/Resolved]
